FAERS Safety Report 11571949 (Version 2)
Quarter: 2015Q4

REPORT INFORMATION
  Report Type: Spontaneous
  Country: FR (occurrence: FR)
  Receive Date: 20150929
  Receipt Date: 20151001
  Transmission Date: 20160304
  Serious: Yes (Hospitalization)
  Sender: FDA-Public Use
  Company Number: FR-ASTRAZENECA-2015SE92826

PATIENT
  Age: 31625 Day
  Sex: Female

DRUGS (2)
  1. INEXIUM [Suspect]
     Active Substance: ESOMEPRAZOLE
     Dosage: DAILY
     Route: 048
     Dates: start: 2015, end: 20150910
  2. TEGRETOL [Concomitant]
     Active Substance: CARBAMAZEPINE
     Indication: SEIZURE
     Route: 048
     Dates: start: 1985

REACTIONS (4)
  - Myositis [Recovering/Resolving]
  - Blood creatine phosphokinase increased [Recovering/Resolving]
  - Dyspnoea [Unknown]
  - Muscle fatigue [Recovering/Resolving]

NARRATIVE: CASE EVENT DATE: 201506
